FAERS Safety Report 8923970 (Version 1)
Quarter: 2012Q4

REPORT INFORMATION
  Report Type: Spontaneous
  Country: US (occurrence: None)
  Receive Date: 20121121
  Receipt Date: 20121121
  Transmission Date: 20130627
  Serious: No
  Sender: FDA-Public Use
  Company Number: None

PATIENT
  Age: 54 Year
  Sex: Male

DRUGS (1)
  1. AMOXICILLIN/CLAVULANATE POTASSIUM [Suspect]
     Indication: COLD SYMPTOMS
     Route: 048
     Dates: start: 20110113, end: 20110120

REACTIONS (8)
  - Drug-induced liver injury [None]
  - Chromaturia [None]
  - Blood alkaline phosphatase increased [None]
  - Aspartate aminotransferase increased [None]
  - Alanine aminotransferase increased [None]
  - Blood bilirubin increased [None]
  - Faeces pale [None]
  - Fatigue [None]
